FAERS Safety Report 8305448-0 (Version None)
Quarter: 2012Q2

REPORT INFORMATION
  Report Type: 
  Country: None (occurrence: None)
  Receive Date: 20120423
  Receipt Date: 20120419
  Transmission Date: 20120825
  Serious: Yes (Hospitalization)
  Sender: FDA-Public Use
  Company Number: US-GLAXOSMITHKLINE-A0748631A

PATIENT
  Age: 67 Year
  Sex: Male
  Weight: 145.5 kg

DRUGS (5)
  1. ATENOLOL [Concomitant]
  2. AVANDIA [Suspect]
     Indication: DIABETES MELLITUS
     Dosage: 4MG TWICE PER DAY
     Route: 048
     Dates: start: 20051101, end: 20060401
  3. VALSARTAN [Concomitant]
  4. MOMETASONE FUROATE [Concomitant]
  5. MONTELUKAST [Concomitant]

REACTIONS (2)
  - HEART INJURY [None]
  - ARTERIAL OCCLUSIVE DISEASE [None]
